FAERS Safety Report 10555471 (Version 3)
Quarter: 2014Q4

REPORT INFORMATION
  Report Type: Spontaneous
  Country: JP (occurrence: JP)
  Receive Date: 20141030
  Receipt Date: 20141204
  Transmission Date: 20150529
  Serious: Yes (Other)
  Sender: FDA-Public Use
  Company Number: JP-PFIZER INC-2014298501

PATIENT
  Age: 62 Year
  Sex: Female

DRUGS (5)
  1. CORTRIL [Suspect]
     Active Substance: HYDROCORTISONE
     Dosage: 5 MG, DAILY
     Route: 048
     Dates: start: 20131009, end: 20131010
  2. CORTRIL [Suspect]
     Active Substance: HYDROCORTISONE
     Indication: POSTPARTUM HYPOPITUITARISM
     Dosage: 5 MG, DAILY
     Route: 048
     Dates: start: 20131003, end: 20131005
  3. CORTRIL [Suspect]
     Active Substance: HYDROCORTISONE
     Dosage: 7.5 MG, DAILY
     Route: 048
     Dates: start: 20131011, end: 20131012
  4. CORTRIL [Suspect]
     Active Substance: HYDROCORTISONE
     Dosage: 10 MG, DAILY
     Route: 048
     Dates: start: 20131013, end: 20131015
  5. CORTRIL [Suspect]
     Active Substance: HYDROCORTISONE
     Dosage: 2.5 MG, DAILY
     Route: 048
     Dates: start: 20131006, end: 20131008

REACTIONS (1)
  - Substance-induced psychotic disorder [Recovered/Resolved]

NARRATIVE: CASE EVENT DATE: 20131013
